FAERS Safety Report 8437421-6 (Version None)
Quarter: 2012Q2

REPORT INFORMATION
  Report Type: 
  Country: None (occurrence: None)
  Receive Date: 20120614
  Receipt Date: 20120613
  Transmission Date: 20120825
  Serious: No
  Sender: FDA-Public Use
  Company Number: US-ASTRAZENECA-2012SE29037

PATIENT
  Age: 51 Year
  Sex: Female

DRUGS (7)
  1. LOVAZA [Concomitant]
  2. VALIUM [Concomitant]
  3. LIPITOR [Concomitant]
  4. VITAMIN TAB [Concomitant]
  5. NEXIUM [Suspect]
     Indication: GASTROOESOPHAGEAL REFLUX DISEASE
     Route: 048
     Dates: start: 20060101, end: 20120301
  6. ALLEGRA [Concomitant]
  7. SINGULAIR [Concomitant]

REACTIONS (4)
  - GASTROOESOPHAGEAL REFLUX DISEASE [None]
  - REFLUX GASTRITIS [None]
  - CHEST PAIN [None]
  - DRUG INEFFECTIVE [None]
